FAERS Safety Report 7990733-2 (Version None)
Quarter: 2011Q4

REPORT INFORMATION
  Report Type: 
  Country: None (occurrence: None)
  Receive Date: 20111219
  Receipt Date: 20111219
  Transmission Date: 20120403
  Serious: No
  Sender: FDA-Public Use
  Company Number: None

PATIENT
  Age: 80 Year
  Sex: Male

DRUGS (1)
  1. ELIGARD [Suspect]
     Indication: PROSTATIC SPECIFIC ANTIGEN
     Dosage: 7.5MG
     Route: 058
     Dates: start: 20110809, end: 20110809

REACTIONS (3)
  - INJECTION SITE NECROSIS [None]
  - INJECTION SITE ULCER [None]
  - SKIN NECROSIS [None]
